FAERS Safety Report 18691199 (Version 9)
Quarter: 2022Q2

REPORT INFORMATION
  Report Type: Report from Study
  Country: RU (occurrence: RU)
  Receive Date: 20210101
  Receipt Date: 20220406
  Transmission Date: 20220720
  Serious: Yes (Hospitalization)
  Sender: FDA-Public Use
  Company Number: NVSC2020RU339319

PATIENT
  Age: 45 Year
  Sex: Female
  Weight: 103 kg

DRUGS (4)
  1. OFATUMUMAB [Suspect]
     Active Substance: OFATUMUMAB
     Indication: Multiple sclerosis relapse
     Dosage: 1 DOSAGE FORM, QW
     Route: 058
     Dates: start: 20190617, end: 20201222
  2. OFATUMUMAB [Suspect]
     Active Substance: OFATUMUMAB
     Indication: Multiple sclerosis relapse
     Dosage: 20 MG, Q4W
     Route: 058
     Dates: start: 20190611, end: 20201124
  3. ENALAPRIL [Concomitant]
     Active Substance: ENALAPRIL
     Indication: Blood pressure increased
     Dosage: UNK
     Route: 065
     Dates: start: 20190616
  4. CARBAMAZEPINE [Concomitant]
     Active Substance: CARBAMAZEPINE
     Indication: Symptomatic treatment
     Dosage: UNK
     Route: 065
     Dates: start: 20201210

REACTIONS (1)
  - Suspected COVID-19 [Recovered/Resolved]

NARRATIVE: CASE EVENT DATE: 20201210
